FAERS Safety Report 8637049 (Version 3)
Quarter: 2013Q4

REPORT INFORMATION
  Report Type: Spontaneous
  Country: HR (occurrence: HR)
  Receive Date: 20120626
  Receipt Date: 20131105
  Transmission Date: 20140711
  Serious: Yes (Other)
  Sender: FDA-Public Use
  Company Number: HR-009507513-1206USA03648

PATIENT
  Age: 53 Year
  Sex: Female

DRUGS (1)
  1. FOSAMAX TAB 10 MG [Suspect]
     Indication: OSTEOPOROSIS
     Dosage: 70 MG, QW
     Route: 048
     Dates: start: 2007

REACTIONS (5)
  - Leukoplakia oral [Recovered/Resolved]
  - Dysphagia [Unknown]
  - Stomatitis [Unknown]
  - Glossodynia [Not Recovered/Not Resolved]
  - Headache [Not Recovered/Not Resolved]
